FAERS Safety Report 9773043 (Version 1)
Quarter: 2013Q4

REPORT INFORMATION
  Report Type: Not Available
  Country: FR (occurrence: FR)
  Receive Date: 20131219
  Receipt Date: 20131219
  Transmission Date: 20140711
  Serious: Yes (Hospitalization)
  Sender: FDA-Public Use
  Company Number: FR-NAPPMUNDI-GBR-2013-0016581

PATIENT
  Age: 89 Year
  Sex: Female

DRUGS (2)
  1. OXYNORMORO COMPRIME ORODISPERSIBLE [Suspect]
     Indication: PRODUCT USED FOR UNKNOWN INDICATION
     Dosage: UNK
     Route: 048
     Dates: start: 20121228, end: 20130103
  2. MORPHINE AGUETTANT [Suspect]
     Indication: PRODUCT USED FOR UNKNOWN INDICATION
     Dosage: 5 MG, TID
     Route: 065
     Dates: start: 20121228, end: 20130103

REACTIONS (5)
  - Overdose [Recovered/Resolved]
  - Miosis [Recovered/Resolved]
  - Depressed level of consciousness [Recovered/Resolved]
  - Bradypnoea [Recovered/Resolved]
  - Convulsion [Recovered/Resolved]
